FAERS Safety Report 8791855 (Version 1)
Quarter: 2012Q4

REPORT INFORMATION
  Report Type: 
  Country: US (occurrence: US)
  Receive Date: 20120918
  Receipt Date: 20120918
  Transmission Date: 20130627
  Serious: No
  Sender: FDA-Public Use
  Company Number: US-B.I. PHARMACEUTICALS,INC./RIDGEFIELD-2012-BP-22496BP

PATIENT
  Sex: Female

DRUGS (11)
  1. PRADAXA [Suspect]
     Indication: ATRIAL FIBRILLATION
     Dosage: 300 mg
     Route: 048
     Dates: start: 2011
  2. COZAAR [Concomitant]
     Indication: HYPERTENSION
     Dosage: 150 mg
     Route: 048
     Dates: start: 2011
  3. COREG [Concomitant]
     Indication: HEART RATE INCREASED
     Dosage: 25 mg
     Route: 048
     Dates: start: 2011
  4. VASOTEC [Concomitant]
     Indication: HYPERTENSION
     Dosage: 40 mg
     Route: 048
  5. PRAZOSIN [Concomitant]
     Dosage: 4 mg
     Route: 048
  6. VENTOLIN [Concomitant]
     Indication: LUNG DISORDER
     Route: 055
  7. ADVAIR [Concomitant]
     Indication: LUNG DISORDER
     Route: 055
  8. MAXIDE [Concomitant]
     Route: 048
  9. KETOCONAZOLE [Concomitant]
     Route: 061
  10. ACETAMINOPHEN [Concomitant]
     Indication: MUSCULOSKELETAL DISCOMFORT
     Dosage: 1300 mg
     Route: 048
  11. MECLIZINE [Concomitant]
     Indication: VERTIGO
     Route: 048

REACTIONS (5)
  - Abdominal pain lower [Not Recovered/Not Resolved]
  - Abdominal distension [Not Recovered/Not Resolved]
  - Diarrhoea [Not Recovered/Not Resolved]
  - Fatigue [Not Recovered/Not Resolved]
  - Blood pressure decreased [Not Recovered/Not Resolved]
